FAERS Safety Report 15692799 (Version 1)
Quarter: 2018Q4

REPORT INFORMATION
  Report Type: Spontaneous
  Country: FI (occurrence: FI)
  Receive Date: 20181206
  Receipt Date: 20181206
  Transmission Date: 20190205
  Serious: Yes (Disabling)
  Sender: FDA-Public Use
  Company Number: FI-ACCORD-095077

PATIENT
  Age: 67 Year
  Sex: Male

DRUGS (8)
  1. ZOLADEX [Concomitant]
     Active Substance: GOSERELIN ACETATE
     Indication: PROSTATE CANCER METASTATIC
     Dosage: 10.8,MG,CYCLICAL
     Route: 058
     Dates: start: 20170203
  2. SOMAC [Concomitant]
     Active Substance: PANTOPRAZOLE SODIUM
     Indication: PROPHYLAXIS AGAINST GASTROINTESTINAL ULCER
     Dosage: 40,MG,DAILY
     Route: 048
     Dates: start: 20170215, end: 20170605
  3. BICALUTAMID ORION [Concomitant]
     Indication: PROSTATE CANCER METASTATIC
     Dosage: 50,MG,DAILY
     Route: 048
     Dates: start: 20170201
  4. GRANISETRON STADA [Concomitant]
     Indication: PROPHYLAXIS OF NAUSEA AND VOMITING
     Route: 048
     Dates: start: 20170215, end: 20170605
  5. OXYCODON HCL ACCORD [Concomitant]
     Indication: PAIN
     Dosage: 40,MG,DAILY
     Route: 048
     Dates: start: 20170125
  6. LYRICA [Concomitant]
     Active Substance: PREGABALIN
     Indication: NEURALGIA
     Dosage: 150,MG,DAILY
     Route: 048
     Dates: start: 20170125, end: 20170502
  7. DEXAMETHASONE. [Concomitant]
     Active Substance: DEXAMETHASONE
     Indication: PREMEDICATION
     Dosage: 15,MG,DAILY
     Route: 048
     Dates: start: 20170215, end: 20170605
  8. DOCETAXEL ACCORD [Suspect]
     Active Substance: DOCETAXEL
     Indication: PRODUCT USED FOR UNKNOWN INDICATION
     Dosage: 140 MG, CYCLICAL
     Route: 042

REACTIONS (1)
  - Toxic optic neuropathy [Recovered/Resolved with Sequelae]

NARRATIVE: CASE EVENT DATE: 201707
